FAERS Safety Report 5076958-7 (Version None)
Quarter: 2006Q3

REPORT INFORMATION
  Report Type: 
  Country: None (occurrence: None)
  Receive Date: 20060810
  Receipt Date: 20060807
  Transmission Date: 20061208
  Serious: Yes (Hospitalization)
  Sender: FDA-Public Use
  Company Number: US-GLAXOSMITHKLINE-A0615594A

PATIENT
  Age: 62 Year
  Sex: Female

DRUGS (10)
  1. COREG [Suspect]
     Dosage: 3.125MG TWICE PER DAY
     Route: 048
     Dates: start: 20060712
  2. WARFARIN SODIUM [Concomitant]
  3. LASIX [Concomitant]
  4. MAGNESIUM OXIDE [Concomitant]
  5. BACTRIM DS [Concomitant]
  6. NEXIUM [Concomitant]
  7. DIGOXIN [Concomitant]
  8. POTASSIUM [Concomitant]
  9. PEPCID [Concomitant]
  10. TUMS [Concomitant]

REACTIONS (11)
  - ABDOMINAL DISTENSION [None]
  - CARDIAC FAILURE CONGESTIVE [None]
  - DIARRHOEA [None]
  - DYSPNOEA [None]
  - EATING DISORDER [None]
  - ILL-DEFINED DISORDER [None]
  - NAUSEA [None]
  - OXYGEN SATURATION DECREASED [None]
  - PULMONARY OEDEMA [None]
  - RETCHING [None]
  - WEIGHT INCREASED [None]
